FAERS Safety Report 8233619-0 (Version None)
Quarter: 2012Q1

REPORT INFORMATION
  Report Type: 
  Country: None (occurrence: None)
  Receive Date: 20120326
  Receipt Date: 20120315
  Transmission Date: 20120608
  Serious: Yes (Hospitalization, Other)
  Sender: FDA-Public Use
  Company Number: PHFR2011GB007098

PATIENT
  Sex: Female

DRUGS (14)
  1. CLOZARIL [Suspect]
     Dosage: 50 MG, BID
     Dates: start: 20120101
  2. FLUPENTIXOL [Concomitant]
     Dates: start: 20100501
  3. AMISULPRIDE [Concomitant]
     Dates: start: 20100801
  4. PIPORTIL [Concomitant]
     Dates: start: 20110201, end: 20110701
  5. CLOZARIL [Suspect]
     Dosage: 50 MG,
     Route: 048
     Dates: end: 20100426
  6. CLOZARIL [Suspect]
     Dosage: 100 MG,
     Route: 048
     Dates: start: 20111201
  7. ACETAMINOPHEN [Concomitant]
  8. CLOZARIL [Suspect]
     Indication: SCHIZOPHRENIA
     Dosage: 400 MG, UNK
     Route: 048
     Dates: start: 20020212
  9. OLANZAPINE [Concomitant]
     Dosage: UNK UKN, UNK
     Dates: start: 20111101
  10. CLOZARIL [Suspect]
     Dosage: 25 MG, BID FOR 4 DAYS
     Dates: start: 20120202
  11. ARIPIPRAZOLE [Concomitant]
     Dates: start: 20101001
  12. FLUPENTIXOL [Concomitant]
     Dates: start: 20101101
  13. CLOZARIL [Suspect]
     Dosage: 25 MG/NIGHT
  14. QUETIAPINE [Concomitant]
     Dates: start: 20110701

REACTIONS (8)
  - CARDIAC DISORDER [None]
  - MENTAL IMPAIRMENT [None]
  - ELECTROCARDIOGRAM QT SHORTENED [None]
  - DRUG INEFFECTIVE [None]
  - HYPERTENSION [None]
  - ELECTROCARDIOGRAM ABNORMAL [None]
  - INTENTIONAL OVERDOSE [None]
  - MOOD ALTERED [None]
